FAERS Safety Report 19800505 (Version 3)
Quarter: 2021Q4

REPORT INFORMATION
  Report Type: Spontaneous
  Country: US (occurrence: US)
  Receive Date: 20210907
  Receipt Date: 20211007
  Transmission Date: 20220303
  Serious: Yes (Other)
  Sender: FDA-Public Use
  Company Number: US-NEUROCRINE BIOSCIENCES INC.-2021NBI04938

PATIENT

DRUGS (15)
  1. OPICAPONE [Suspect]
     Active Substance: OPICAPONE
     Indication: Parkinson^s disease
     Dosage: 50 MILLIGRAM, QD
     Route: 048
     Dates: start: 20210811, end: 202108
  2. OPICAPONE [Suspect]
     Active Substance: OPICAPONE
     Dosage: 25 MILLIGRAM, QD
     Route: 048
     Dates: start: 20210305, end: 20210811
  3. OPICAPONE [Suspect]
     Active Substance: OPICAPONE
     Dosage: 25 MILLIGRAM, QD
     Route: 048
     Dates: start: 202108
  4. CARBIDOPA\LEVODOPA [Concomitant]
     Active Substance: CARBIDOPA\LEVODOPA
     Dosage: 25/100 MG 8 AND HALF TABSPER DAY
  5. MIRAPEX [Concomitant]
     Active Substance: PRAMIPEXOLE DIHYDROCHLORIDE
     Dosage: 3 IN THE MORNING
  6. MIRAPEX [Concomitant]
     Active Substance: PRAMIPEXOLE DIHYDROCHLORIDE
     Dosage: 3 IN THE MORNING 2 MID MORNING 2 IN THE AFTERNOON 2 EVENING
  7. ZOLOFT [Concomitant]
     Active Substance: SERTRALINE HYDROCHLORIDE
     Indication: Anxiety
     Dosage: 75 MILLIGRAM
  8. ZOLOFT [Concomitant]
     Active Substance: SERTRALINE HYDROCHLORIDE
     Dosage: 100 MILLIGRAM, QD
  9. XANAX [Concomitant]
     Active Substance: ALPRAZOLAM
     Dosage: .25 MILLIGRAM, PRN
  10. XANAX [Concomitant]
     Active Substance: ALPRAZOLAM
     Dosage: 0.125 MILLIGRAM, PRN
     Route: 065
  11. CARBIDOPA\LEVODOPA [Concomitant]
     Active Substance: CARBIDOPA\LEVODOPA
     Dosage: HALF OF 50/200 MG
  12. METFORMIN HYDROCHLORIDE [Concomitant]
     Active Substance: METFORMIN HYDROCHLORIDE
     Dosage: 200 MILLIGRAM, QD
  13. GABAPENTIN [Concomitant]
     Active Substance: GABAPENTIN
     Indication: Procedural pain
     Dosage: 100 MILLIGRAM, BID
  14. MAGNESIUM [Concomitant]
     Active Substance: MAGNESIUM
     Dosage: 500 MILLIGRAM, QD (AT NIGHT)
  15. ATORVASTATIN [Concomitant]
     Active Substance: ATORVASTATIN
     Indication: Blood cholesterol
     Dosage: 20 MILLIGRAM

REACTIONS (5)
  - Hallucination [Recovering/Resolving]
  - Blood pressure decreased [Recovering/Resolving]
  - Parkinson^s disease [Recovering/Resolving]
  - Delusion [Recovering/Resolving]
  - Therapeutic product effect decreased [Unknown]

NARRATIVE: CASE EVENT DATE: 20210101
